FAERS Safety Report 16750849 (Version 1)
Quarter: 2019Q3

REPORT INFORMATION
  Report Type: Spontaneous
  Country: DE (occurrence: US)
  Receive Date: 20190828
  Receipt Date: 20190828
  Transmission Date: 20191005
  Serious: Yes (Life-Threatening, Hospitalization, Other)
  Sender: FDA-Public Use
  Company Number: DE-KADMON PHARMACEUTICALS, LLC-KAD-201908-01474

PATIENT
  Age: 45 Year
  Sex: Male
  Weight: 76 kg

DRUGS (7)
  1. EPCLUSA [Suspect]
     Active Substance: SOFOSBUVIR\VELPATASVIR
     Dates: start: 20181018
  2. RIBAVIRIN. [Suspect]
     Active Substance: RIBAVIRIN
     Dosage: WEIGHT ADAPTED DOSE
     Route: 048
     Dates: start: 20180831, end: 20181015
  3. EPCLUSA [Suspect]
     Active Substance: SOFOSBUVIR\VELPATASVIR
     Dates: start: 20180831, end: 20181015
  4. EPCLUSA [Suspect]
     Active Substance: SOFOSBUVIR\VELPATASVIR
     Indication: CHRONIC HEPATITIS C
     Route: 048
     Dates: end: 20180827
  5. RIBAVIRIN. [Suspect]
     Active Substance: RIBAVIRIN
     Dosage: WEIGHT ADAPTED DOSE
     Route: 048
     Dates: start: 20181018
  6. POLAMIDON [Concomitant]
     Active Substance: LEVOMETHADONE
  7. RIBAVIRIN. [Suspect]
     Active Substance: RIBAVIRIN
     Indication: CHRONIC HEPATITIS C
     Dosage: WEIGHT ADAPTED DOSE
     Route: 048
     Dates: end: 20180827

REACTIONS (3)
  - Drug ineffective [Unknown]
  - Hepatitis C [Unknown]
  - Hepatic encephalopathy [Recovered/Resolved]
